FAERS Safety Report 11897968 (Version 1)
Quarter: 2016Q1

REPORT INFORMATION
  Report Type: Report from Study
  Country: GB (occurrence: None)
  Receive Date: 20160106
  Receipt Date: 20160106
  Transmission Date: 20160526
  Serious: Yes (Hospitalization, Other)
  Sender: FDA-Public Use
  Company Number: RAP-0234-2014

PATIENT
  Age: 23 Year
  Sex: Male
  Weight: 63.3 kg

DRUGS (13)
  1. LYMECYCLINE [Concomitant]
     Active Substance: LYMECYCLINE
  2. NIFEDIPINE. [Concomitant]
     Active Substance: NIFEDIPINE
  3. CALCICHEW D3 (CALCIUM CARBONATE, COLECALCIFEROL) [Concomitant]
  4. CYSTAGON [Suspect]
     Active Substance: CYSTEAMINE BITARTRATE
     Indication: CYSTINOSIS
     Dosage: 150 MG TOS ORAL
     Route: 048
     Dates: start: 201302, end: 20140729
  5. OMEPRAZOLE. [Concomitant]
     Active Substance: OMEPRAZOLE
  6. LIDOCAINE. [Concomitant]
     Active Substance: LIDOCAINE
  7. MYCOPHENOLATE [Concomitant]
     Active Substance: MYCOPHENOLIC ACID
  8. PROGRAF [Concomitant]
     Active Substance: TACROLIMUS\TACROLIMUS ANHYDROUS
  9. RP103 (CYSTEAMINE BITARTRATE) DELAYED-RELEASED CAPSULE (LOT # 3106921) [Suspect]
     Active Substance: CYSTEAMINE BITARTRATE
     Indication: CYSTINOSIS
     Route: 048
     Dates: start: 20140813
  10. PREDNISONE. [Concomitant]
     Active Substance: PREDNISONE
  11. ALFACALCIDOL [Concomitant]
     Active Substance: ALFACALCIDOL
  12. RANITIDINE [Concomitant]
     Active Substance: RANITIDINE\RANITIDINE HYDROCHLORIDE
  13. THYROXINE [Concomitant]
     Active Substance: LEVOTHYROXINE

REACTIONS (12)
  - Dizziness exertional [None]
  - Alanine aminotransferase increased [None]
  - Sepsis [None]
  - Lethargy [None]
  - Swelling [None]
  - Abdominal pain upper [None]
  - Epstein-Barr virus test positive [None]
  - Groin pain [None]
  - Vomiting [None]
  - Decreased appetite [None]
  - Weight decreased [None]
  - Gastric polyps [None]

NARRATIVE: CASE EVENT DATE: 20140730
